FAERS Safety Report 5836435-X (Version None)
Quarter: 2008Q3

REPORT INFORMATION
  Report Type: 
  Country: None (occurrence: None)
  Receive Date: 20080807
  Receipt Date: 20080728
  Transmission Date: 20090109
  Serious: Yes (Other)
  Sender: FDA-Public Use
  Company Number: PHHY2008MX15973

PATIENT
  Sex: Male

DRUGS (2)
  1. TRILEPTAL [Suspect]
     Indication: EPILEPSY
     Dosage: 600 MG, 2 TABLETS DAILY
     Route: 048
     Dates: start: 19970501, end: 20080701
  2. TRILEPTAL [Suspect]
     Dosage: 300 MG, 4 TABLETS DAILY
     Route: 048
     Dates: start: 20080701

REACTIONS (6)
  - AGGRESSION [None]
  - ANGER [None]
  - ANXIETY [None]
  - EMOTIONAL DISTRESS [None]
  - GLOSSITIS [None]
  - IRRITABILITY [None]
